FAERS Safety Report 23049730 (Version 1)
Quarter: 2023Q4

REPORT INFORMATION
  Report Type: Spontaneous
  Country: US (occurrence: None)
  Receive Date: 20231007
  Receipt Date: 20231007
  Transmission Date: 20240109
  Serious: Yes (Other)
  Sender: FDA-Public Use
  Company Number: None

PATIENT
  Age: 52 Year
  Sex: Male
  Weight: 74.25 kg

DRUGS (5)
  1. ROPEGINTERFERON ALFA-2B-NJFT [Suspect]
     Active Substance: ROPEGINTERFERON ALFA-2B-NJFT
     Indication: Polycythaemia vera
     Dates: start: 20230619, end: 20230925
  2. HZT Paxil Valsartan [Concomitant]
  3. Milk Thistle Vitamin D [Concomitant]
  4. Quercetin Iron with Vitamin [Concomitant]
  5. MULTI-VITAMIN [Concomitant]
     Active Substance: .ALPHA.-TOCOPHEROL ACETATE, DL-\ASCORBIC ACID\CYANOCOBALAMIN\FLUORIDE ION\FOLIC ACID\NIACIN\PYRIDOXI

REACTIONS (16)
  - Implant site pain [None]
  - Arthralgia [None]
  - Arthralgia [None]
  - Back pain [None]
  - Arthralgia [None]
  - Arthralgia [None]
  - Myalgia [None]
  - Pruritus [None]
  - Hyperhidrosis [None]
  - Diarrhoea [None]
  - Nocturia [None]
  - Alopecia [None]
  - Upper-airway cough syndrome [None]
  - Insomnia [None]
  - Hepatic pain [None]
  - Erectile dysfunction [None]

NARRATIVE: CASE EVENT DATE: 20231007
